FAERS Safety Report 10519400 (Version 4)
Quarter: 2015Q3

REPORT INFORMATION
  Report Type: Report from Study
  Country: NL (occurrence: NL)
  Receive Date: 20141015
  Receipt Date: 20150702
  Transmission Date: 20151125
  Serious: Yes (Other)
  Sender: FDA-Public Use
  Company Number: NL-ABBVIE-14P-114-1292780-00

PATIENT
  Age: 82 Year
  Sex: Male
  Weight: 80 kg

DRUGS (12)
  1. CALCIUMCARBONAAT [Concomitant]
     Indication: PRODUCT USED FOR UNKNOWN INDICATION
     Dosage: 2.5G (1000MG CA)
     Route: 048
  2. PERINDOPRIL [Concomitant]
     Active Substance: PERINDOPRIL
     Indication: HYPERTENSION
     Route: 048
  3. OXAZEPAM. [Concomitant]
     Active Substance: OXAZEPAM
     Indication: PRODUCT USED FOR UNKNOWN INDICATION
     Dosage: 2/3 TIMES DAILY
     Route: 048
  4. NYSTATINE [Concomitant]
     Indication: PRODUCT USED FOR UNKNOWN INDICATION
     Dosage: SUSPENSION/100.000E/ML
     Route: 048
  5. LUCRIN (LEUPRORELIN) [Suspect]
     Active Substance: LEUPROLIDE ACETATE
     Indication: PROSTATE CANCER
     Route: 058
     Dates: start: 20131023
  6. ZOLPIDEM [Concomitant]
     Active Substance: ZOLPIDEM\ZOLPIDEM TARTRATE
     Indication: PRODUCT USED FOR UNKNOWN INDICATION
     Route: 048
  7. PREDNISOLON [Concomitant]
     Active Substance: PREDNISOLONE
     Indication: PRODUCT USED FOR UNKNOWN INDICATION
     Route: 048
  8. PANTOPRAZOLE SODIUM. [Concomitant]
     Active Substance: PANTOPRAZOLE SODIUM
     Indication: PRODUCT USED FOR UNKNOWN INDICATION
     Route: 048
  9. BUDESONIDE. [Concomitant]
     Active Substance: BUDESONIDE
     Indication: PRODUCT USED FOR UNKNOWN INDICATION
     Dosage: 400UG/DO FL 200DO TURBUHALER
     Route: 055
  10. POVIDON [Concomitant]
     Indication: PRODUCT USED FOR UNKNOWN INDICATION
     Dosage: 50MG/ML FL 10ML
     Route: 047
  11. DEXAMETHASON [Concomitant]
     Active Substance: DEXAMETHASONE
     Indication: PRODUCT USED FOR UNKNOWN INDICATION
     Route: 048
  12. METOCLOPRAMIDE. [Concomitant]
     Active Substance: METOCLOPRAMIDE
     Indication: PRODUCT USED FOR UNKNOWN INDICATION
     Route: 054

REACTIONS (6)
  - Prostatic specific antigen increased [Not Recovered/Not Resolved]
  - Decreased appetite [Not Recovered/Not Resolved]
  - Metastases to bone [Not Recovered/Not Resolved]
  - Hot flush [Recovered/Resolved]
  - Ageusia [Not Recovered/Not Resolved]
  - Injection site reaction [Not Recovered/Not Resolved]

NARRATIVE: CASE EVENT DATE: 201406
